FAERS Safety Report 7522095-9 (Version None)
Quarter: 2011Q2

REPORT INFORMATION
  Report Type: 
  Country: None (occurrence: None)
  Receive Date: 20110603
  Receipt Date: 20110601
  Transmission Date: 20111010
  Serious: Yes (Other)
  Sender: FDA-Public Use
  Company Number: JP-PFIZER INC-2011120109

PATIENT
  Age: 86 Year
  Sex: Male

DRUGS (3)
  1. LYRICA [Suspect]
     Indication: PAIN IN EXTREMITY
     Dosage: 75 MG, 1X/DAY
     Route: 048
     Dates: start: 20110419, end: 20110517
  2. LYRICA [Suspect]
     Indication: HYPOAESTHESIA
     Dosage: 100 MG/DAY
     Route: 048
     Dates: start: 20110518
  3. PL [Concomitant]

REACTIONS (2)
  - DEAFNESS [None]
  - HEARING IMPAIRED [None]
